FAERS Safety Report 6551213-4 (Version None)
Quarter: 2010Q1

REPORT INFORMATION
  Report Type: 
  Country: None (occurrence: None)
  Receive Date: 20100121
  Receipt Date: 20100108
  Transmission Date: 20100710
  Serious: Yes (Hospitalization)
  Sender: FDA-Public Use
  Company Number: 2010AL000289

PATIENT
  Age: 81 Year
  Sex: Female

DRUGS (3)
  1. DICLOFENAC SODIUM [Suspect]
     Indication: ARTHRITIS
     Dosage: 75 MG; PO
     Route: 048
     Dates: start: 20040101, end: 20071101
  2. ARICEPT [Concomitant]
  3. OMEPRAZOLE [Concomitant]

REACTIONS (5)
  - BARRETT'S OESOPHAGUS [None]
  - EROSIVE OESOPHAGITIS [None]
  - GASTROINTESTINAL HAEMORRHAGE [None]
  - HAEMOGLOBIN DECREASED [None]
  - REFLUX OESOPHAGITIS [None]
